FAERS Safety Report 23376567 (Version 1)
Quarter: 2024Q1

REPORT INFORMATION
  Report Type: Other
  Country: GB (occurrence: GB)
  Receive Date: 20240108
  Receipt Date: 20240108
  Transmission Date: 20240410
  Serious: Yes (Other)
  Sender: FDA-Public Use
  Company Number: None

PATIENT

DRUGS (2)
  1. DEXAMETHASONE [Suspect]
     Active Substance: DEXAMETHASONE
     Indication: Ear infection
     Dosage: 1 DOSAGE FORM, 2 DOSE DAILY (APPLY)
     Route: 061
     Dates: start: 20231211, end: 20231218
  2. CIPROFLOXACIN [Suspect]
     Active Substance: CIPROFLOXACIN
     Indication: Ear infection
     Dosage: 1 DOSAGE FORM, 2 DOSE DAILY (APPLY)
     Route: 061
     Dates: start: 20231211, end: 20231218

REACTIONS (3)
  - Off label use [Unknown]
  - Swollen tongue [Unknown]
  - Mouth ulceration [Unknown]

NARRATIVE: CASE EVENT DATE: 20231211
